FAERS Safety Report 25717790 (Version 1)
Quarter: 2025Q3

REPORT INFORMATION
  Report Type: Spontaneous
  Country: EU (occurrence: EU)
  Receive Date: 20250822
  Receipt Date: 20250822
  Transmission Date: 20251021
  Serious: Yes (Other)
  Sender: NOVARTIS
  Company Number: EU-002147023-NVSC2025FR129643

PATIENT
  Age: 37 Year
  Sex: Female

DRUGS (2)
  1. PAZOPANIB [Suspect]
     Active Substance: PAZOPANIB
     Indication: Chondrosarcoma
     Route: 065
  2. TRABECTEDIN [Concomitant]
     Active Substance: TRABECTEDIN
     Indication: Product used for unknown indication
     Route: 042

REACTIONS (4)
  - Retroperitoneal infection [Unknown]
  - Chondrosarcoma [Unknown]
  - Malignant neoplasm progression [Unknown]
  - Off label use [Unknown]
